FAERS Safety Report 10609832 (Version 6)
Quarter: 2015Q1

REPORT INFORMATION
  Report Type: Spontaneous
  Country: JP (occurrence: JP)
  Receive Date: 20141126
  Receipt Date: 20150126
  Transmission Date: 20150720
  Serious: Yes (Hospitalization)
  Sender: FDA-Public Use
  Company Number: JP-B.I. PHARMACEUTICALS,INC./RIDGEFIELD-2014-BI-56447GD

PATIENT
  Age: 75 Year
  Sex: Male

DRUGS (1)
  1. LINAGLIPTIN [Suspect]
     Active Substance: LINAGLIPTIN
     Indication: TYPE 2 DIABETES MELLITUS
     Dosage: 5 MG
     Route: 048
     Dates: start: 201402

REACTIONS (2)
  - Decreased appetite [Recovered/Resolved]
  - Polymyalgia rheumatica [Recovered/Resolved]

NARRATIVE: CASE EVENT DATE: 201403
